FAERS Safety Report 20179905 (Version 3)
Quarter: 2022Q1

REPORT INFORMATION
  Report Type: Report from Study
  Country: NL (occurrence: NL)
  Receive Date: 20211214
  Receipt Date: 20220321
  Transmission Date: 20220423
  Serious: Yes (Hospitalization)
  Sender: FDA-Public Use
  Company Number: NL-ABBVIE-21K-114-4108976-00

PATIENT
  Sex: Male

DRUGS (4)
  1. CARBIDOPA\LEVODOPA [Suspect]
     Active Substance: CARBIDOPA\LEVODOPA
     Indication: Parkinson^s disease
     Route: 050
     Dates: start: 20210420, end: 2021
  2. CARBIDOPA\LEVODOPA [Suspect]
     Active Substance: CARBIDOPA\LEVODOPA
     Dosage: MD: 7.5ML, CD: 3.2ML/H, ED: 2.0ML
     Route: 050
     Dates: start: 2021, end: 2021
  3. CARBIDOPA\LEVODOPA [Suspect]
     Active Substance: CARBIDOPA\LEVODOPA
     Dosage: MD: 7.0ML, CD: 3.0ML/H, ED: 2.0ML
     Route: 050
     Dates: start: 2021, end: 2021
  4. CARBIDOPA\LEVODOPA [Suspect]
     Active Substance: CARBIDOPA\LEVODOPA
     Dosage: MD: 6.5ML, CD: 3.0ML/H, ED: 2.0ML
     Route: 050
     Dates: start: 2021

REACTIONS (13)
  - Urinary tract infection [Recovered/Resolved]
  - Extra dose administered [Recovered/Resolved]
  - Fall [Not Recovered/Not Resolved]
  - Freezing phenomenon [Unknown]
  - Unevaluable event [Not Recovered/Not Resolved]
  - Dyskinesia [Unknown]
  - Fibroma [Not Recovered/Not Resolved]
  - Therapeutic response shortened [Not Recovered/Not Resolved]
  - Tension [Not Recovered/Not Resolved]
  - Malaise [Not Recovered/Not Resolved]
  - Stoma complication [Not Recovered/Not Resolved]
  - Stoma site hypersensitivity [Not Recovered/Not Resolved]
  - Infrequent bowel movements [Not Recovered/Not Resolved]

NARRATIVE: CASE EVENT DATE: 20210101
